FAERS Safety Report 6801533-0 (Version None)
Quarter: 2010Q2

REPORT INFORMATION
  Report Type: 
  Country: None (occurrence: None)
  Receive Date: 20100629
  Receipt Date: 20100518
  Transmission Date: 20101027
  Serious: Yes (Other)
  Sender: FDA-Public Use
  Company Number: US-BAXTER-2010BH001834

PATIENT
  Age: 57 Year
  Sex: Female
  Weight: 81 kg

DRUGS (8)
  1. HEPARIN SODIUM [Suspect]
     Indication: ACUTE CORONARY SYNDROME
     Route: 040
     Dates: start: 20080312, end: 20080312
  2. HEPARIN SODIUM [Suspect]
     Route: 058
     Dates: start: 20080315, end: 20080322
  3. HEPARIN SODIUM 5,000 UNITS IN DEXTROSE 5% [Suspect]
     Indication: ACUTE CORONARY SYNDROME
     Route: 041
     Dates: start: 20080312, end: 20080314
  4. MULTI-VITAMINS [Concomitant]
     Indication: DRUG USE FOR UNKNOWN INDICATION
     Route: 065
  5. CALCIUM CARBONATE [Concomitant]
     Indication: DRUG USE FOR UNKNOWN INDICATION
     Route: 065
  6. ALBUTEROL [Concomitant]
     Indication: DRUG USE FOR UNKNOWN INDICATION
     Route: 065
  7. LOVENOX [Concomitant]
     Indication: DRUG USE FOR UNKNOWN INDICATION
     Route: 065
  8. ADVAIR DISKUS 100/50 [Concomitant]
     Indication: DRUG USE FOR UNKNOWN INDICATION
     Route: 055

REACTIONS (8)
  - ABDOMINAL DISTENSION [None]
  - ANGIOEDEMA [None]
  - DRUG HYPERSENSITIVITY [None]
  - OEDEMA PERIPHERAL [None]
  - PRURITUS [None]
  - RASH [None]
  - SWELLING [None]
  - TENDERNESS [None]
